FAERS Safety Report 20643232 (Version 1)
Quarter: 2022Q1

REPORT INFORMATION
  Report Type: Spontaneous
  Country: CN (occurrence: CN)
  Receive Date: 20220328
  Receipt Date: 20220328
  Transmission Date: 20220423
  Serious: Yes (Other)
  Sender: FDA-Public Use
  Company Number: CN-LUPIN PHARMACEUTICALS INC.-2022-04174

PATIENT
  Age: 54 Year
  Sex: Male

DRUGS (7)
  1. OXYCODONE HYDROCHLORIDE [Suspect]
     Active Substance: OXYCODONE HYDROCHLORIDE
     Indication: Cancer pain
     Dosage: UNK
     Route: 048
  2. OXYCODONE HYDROCHLORIDE [Suspect]
     Active Substance: OXYCODONE HYDROCHLORIDE
     Dosage: 30 MG, BID
     Route: 048
  3. CELEBREX [Suspect]
     Active Substance: CELECOXIB
     Indication: Cancer pain
     Dosage: 200 MG, BID
     Route: 048
  4. CELEBREX [Suspect]
     Active Substance: CELECOXIB
     Dosage: 200 MG
     Route: 048
  5. TYLENOL [Suspect]
     Active Substance: ACETAMINOPHEN
     Indication: Cancer pain
     Dosage: UNK
     Route: 048
  6. DEXAMETHASONE [Concomitant]
     Active Substance: DEXAMETHASONE
     Indication: Cancer pain
     Dosage: 7.5 MG, QD
     Route: 048
  7. OXYCONTIN [Concomitant]
     Active Substance: OXYCODONE HYDROCHLORIDE
     Indication: Cancer pain
     Dosage: 30 MG, BID
     Route: 048

REACTIONS (2)
  - Drug ineffective for unapproved indication [Unknown]
  - Off label use [Unknown]
